FAERS Safety Report 15559328 (Version 3)
Quarter: 2018Q4

REPORT INFORMATION
  Report Type: Report from Study
  Country: None (occurrence: CH)
  Receive Date: 20181029
  Receipt Date: 20181129
  Transmission Date: 20190205
  Serious: Yes (Other)
  Sender: FDA-Public Use
  Company Number: CH-ABBVIE-18S-151-2533449-00

PATIENT
  Sex: Female
  Weight: 58.5 kg

DRUGS (4)
  1. DUODOPA [Suspect]
     Active Substance: CARBIDOPA\LEVODOPA
     Indication: PARKINSON^S DISEASE
     Route: 050
     Dates: start: 20181010, end: 20181018
  2. DUODOPA [Suspect]
     Active Substance: CARBIDOPA\LEVODOPA
     Dosage: MD  4ML; CRD 3.8ML/H; CRN1.9ML; ED 1.5ML BLICKING TIME 1HLL 0, 24H THERAPY
     Route: 050
  3. DUODOPA [Suspect]
     Active Substance: CARBIDOPA\LEVODOPA
     Dosage: MD 4ML; CRD 3.8ML/H; CRN  2ML; ED 1.5ML 24H THERAPY
     Route: 050
     Dates: start: 20181018, end: 20181020
  4. DUODOPA [Suspect]
     Active Substance: CARBIDOPA\LEVODOPA
     Dosage: MD 4ML; CRD  3.8ML/H; CRN  2.9ML; ED  1.5ML 24H THERAPY
     Route: 050
     Dates: start: 20181020

REACTIONS (16)
  - Abdominal rigidity [Unknown]
  - Stoma site discharge [Recovering/Resolving]
  - Abdominal distension [Unknown]
  - Stoma site pain [Not Recovered/Not Resolved]
  - Pain [Unknown]
  - Stoma site erythema [Not Recovered/Not Resolved]
  - Gait disturbance [Unknown]
  - Decreased appetite [Unknown]
  - Device dislocation [Unknown]
  - Constipation [Recovered/Resolved]
  - Stoma site inflammation [Unknown]
  - Abdominal pain upper [Recovered/Resolved]
  - Nausea [Unknown]
  - Peritonitis [Recovered/Resolved]
  - Device issue [Unknown]
  - Stoma site pain [Recovered/Resolved]

NARRATIVE: CASE EVENT DATE: 2018
